FAERS Safety Report 8854505 (Version 1)
Quarter: 2012Q4

REPORT INFORMATION
  Report Type: 
  Country: GB (occurrence: GB)
  Receive Date: 20121023
  Receipt Date: 20121023
  Transmission Date: 20130627
  Serious: Yes (Other)
  Sender: FDA-Public Use
  Company Number: GB-PFIZER INC-2012258641

PATIENT

DRUGS (2)
  1. SILDENAFIL CITRATE [Suspect]
     Dosage: UNK
  2. XALATAN [Concomitant]
     Dosage: UNK

REACTIONS (1)
  - Glaucoma [Unknown]
